FAERS Safety Report 24841840 (Version 1)
Quarter: 2025Q1

REPORT INFORMATION
  Report Type: Report from Study
  Country: US (occurrence: US)
  Receive Date: 20250114
  Receipt Date: 20250114
  Transmission Date: 20250409
  Serious: Yes (Hospitalization)
  Sender: EISAI
  Company Number: US-Eisai-EC-2025-182230

PATIENT
  Age: 75 Year
  Sex: Male

DRUGS (35)
  1. LENVIMA [Suspect]
     Active Substance: LENVATINIB
     Indication: Malignant neoplasm of thymus
     Route: 048
     Dates: start: 20240606, end: 202406
  2. LENVIMA [Suspect]
     Active Substance: LENVATINIB
     Route: 048
     Dates: start: 202406, end: 20240705
  3. LENVIMA [Suspect]
     Active Substance: LENVATINIB
     Route: 048
     Dates: start: 20240710, end: 20240714
  4. LENVIMA [Suspect]
     Active Substance: LENVATINIB
     Route: 048
     Dates: start: 20240720, end: 202407
  5. LENVIMA [Suspect]
     Active Substance: LENVATINIB
     Route: 048
     Dates: start: 20240809, end: 20240902
  6. LENVIMA [Suspect]
     Active Substance: LENVATINIB
     Route: 048
     Dates: start: 20240903, end: 20240904
  7. LENVIMA [Suspect]
     Active Substance: LENVATINIB
     Route: 048
     Dates: start: 20240910
  8. ALBUTEROL SULFATE [Concomitant]
     Active Substance: ALBUTEROL SULFATE
  9. AMOXICILLIN [Concomitant]
     Active Substance: AMOXICILLIN
  10. DEXAMETHASONE [Concomitant]
     Active Substance: DEXAMETHASONE
  11. DULOXETINE [Concomitant]
     Active Substance: DULOXETINE
  12. EFFERVESCENT [Concomitant]
  13. ELIQUIS [Concomitant]
     Active Substance: APIXABAN
  14. FINASTERIDE [Concomitant]
     Active Substance: FINASTERIDE
  15. FUROSEMIDE [Concomitant]
     Active Substance: FUROSEMIDE
  16. JARDIANCE [Concomitant]
     Active Substance: EMPAGLIFLOZIN
  17. LACTULOSE [Concomitant]
     Active Substance: LACTULOSE
  18. LIDOCAINE [Concomitant]
     Active Substance: LIDOCAINE
  19. MEGESTROL [Concomitant]
     Active Substance: MEGESTROL
  20. METHADONE HYDROCHLORIDE [Concomitant]
     Active Substance: METHADONE HYDROCHLORIDE
  21. METOPROLOL SUCCINATE [Concomitant]
     Active Substance: METOPROLOL SUCCINATE
  22. ONDANSETRON [Concomitant]
     Active Substance: ONDANSETRON
  23. OXYCODONE HYDROCHLORIDE [Concomitant]
     Active Substance: OXYCODONE HYDROCHLORIDE
  24. PROCHLORPERAZINE [Concomitant]
     Active Substance: PROCHLORPERAZINE
  25. SPIRONOLACTONE [Concomitant]
     Active Substance: SPIRONOLACTONE
  26. ACETAMINOPHEN [Concomitant]
     Active Substance: ACETAMINOPHEN
  27. ATORVASTATIN [Concomitant]
     Active Substance: ATORVASTATIN
  28. GABAPENTIN [Concomitant]
     Active Substance: GABAPENTIN
  29. GLYBURIDE [Concomitant]
     Active Substance: GLYBURIDE
  30. JANUVIA [Concomitant]
     Active Substance: SITAGLIPTIN PHOSPHATE
  31. LOSARTAN POTASSIUM [Concomitant]
     Active Substance: LOSARTAN POTASSIUM
  32. METFORMIN HYDROCHLORIDE [Concomitant]
     Active Substance: METFORMIN HYDROCHLORIDE
  33. RANITIDINE HYDROCHLORIDE [Concomitant]
     Active Substance: RANITIDINE HYDROCHLORIDE
  34. TAMSULOSIN HYDROCHLORIDE [Concomitant]
     Active Substance: TAMSULOSIN HYDROCHLORIDE
  35. IMODIUM A-D [Concomitant]
     Active Substance: LOPERAMIDE HYDROCHLORIDE

REACTIONS (7)
  - Pain [Not Recovered/Not Resolved]
  - Confusional state [Not Recovered/Not Resolved]
  - Decreased appetite [Unknown]
  - Asthenia [Not Recovered/Not Resolved]
  - Balance disorder [Not Recovered/Not Resolved]
  - Memory impairment [Not Recovered/Not Resolved]
  - Heart rate increased [Unknown]

NARRATIVE: CASE EVENT DATE: 20240701
